FAERS Safety Report 10187916 (Version 1)
Quarter: 2014Q2

REPORT INFORMATION
  Report Type: Spontaneous
  Country: US (occurrence: None)
  Receive Date: 20140521
  Receipt Date: 20140521
  Transmission Date: 20141212
  Serious: Yes (Death)
  Sender: FDA-Public Use
  Company Number: None

PATIENT
  Sex: Male
  Weight: 53.2 kg

DRUGS (2)
  1. RIBASHPERE 400MG [Suspect]
     Indication: CHRONIC HEPATITIS C
     Route: 048
  2. PEGASYS [Suspect]
     Dosage: 180 MCG, Q WEEK, SUBQ
     Route: 058

REACTIONS (1)
  - Death [None]
